FAERS Safety Report 5450877-6 (Version None)
Quarter: 2007Q3

REPORT INFORMATION
  Report Type: 
  Country: None (occurrence: None)
  Receive Date: 20070913
  Receipt Date: 20070906
  Transmission Date: 20080115
  Serious: Yes (Other)
  Sender: FDA-Public Use
  Company Number: PHNU2007DE03113

PATIENT
  Age: 61 Year
  Sex: Female

DRUGS (3)
  1. DIOVAN HCT [Suspect]
     Route: 048
     Dates: start: 19950101
  2. OMEPRAZOLE [Concomitant]
     Dosage: OCCACIONALLY
  3. BREXIDOL [Concomitant]

REACTIONS (12)
  - ABDOMINAL PAIN [None]
  - ALLERGY TO CHEMICALS [None]
  - ARTHROPATHY [None]
  - BLOOD PRESSURE INCREASED [None]
  - DIABETES MELLITUS [None]
  - DIARRHOEA [None]
  - DYSPNOEA [None]
  - OEDEMA [None]
  - RASH [None]
  - STOMACH DISCOMFORT [None]
  - TACHYCARDIA [None]
  - VISUAL DISTURBANCE [None]
